FAERS Safety Report 10493475 (Version 3)
Quarter: 2015Q3

REPORT INFORMATION
  Report Type: Report from Study
  Country: US (occurrence: US)
  Receive Date: 20141003
  Receipt Date: 20150818
  Transmission Date: 20151125
  Serious: Yes (Other)
  Sender: FDA-Public Use
  Company Number: US-GILEAD-2014-0116911

PATIENT
  Age: 73 Year
  Sex: Male

DRUGS (17)
  1. DIGOXIN. [Concomitant]
     Active Substance: DIGOXIN
  2. FINASTERIDE. [Concomitant]
     Active Substance: FINASTERIDE
  3. IPRATROPIUM BROMIDE. [Concomitant]
     Active Substance: IPRATROPIUM BROMIDE
  4. OMEPRAZOLE. [Concomitant]
     Active Substance: OMEPRAZOLE
  5. TRACLEER [Concomitant]
     Active Substance: BOSENTAN
     Dosage: UNK
     Dates: end: 2015
  6. COUMADIN [Concomitant]
     Active Substance: WARFARIN SODIUM
  7. DILTIAZEM [Concomitant]
     Active Substance: DILTIAZEM
  8. ALBUTEROL SULFATE. [Concomitant]
     Active Substance: ALBUTEROL SULFATE
  9. FLUNISOLIDE. [Concomitant]
     Active Substance: FLUNISOLIDE
  10. LISINOPRIL. [Concomitant]
     Active Substance: LISINOPRIL
  11. OXYGEN. [Concomitant]
     Active Substance: OXYGEN
  12. AMBRISENTAN [Suspect]
     Active Substance: AMBRISENTAN
     Indication: PULMONARY HYPERTENSION
     Dosage: 10 MG, QD
     Route: 065
     Dates: start: 201408, end: 20140913
  13. LOVASTATIN. [Concomitant]
     Active Substance: LOVASTATIN
  14. POTASSIUM CHLORIDE. [Concomitant]
     Active Substance: POTASSIUM CHLORIDE
  15. FUROSEMIDE. [Concomitant]
     Active Substance: FUROSEMIDE
  16. PROAIR HFA [Concomitant]
     Active Substance: ALBUTEROL SULFATE
  17. UROXATRAL [Concomitant]
     Active Substance: ALFUZOSIN HYDROCHLORIDE

REACTIONS (8)
  - Ear discomfort [Unknown]
  - Drug ineffective [Unknown]
  - Head discomfort [Unknown]
  - Dyspnoea [Unknown]
  - Oedema peripheral [Unknown]
  - Exercise tolerance decreased [Unknown]
  - Dry mouth [Unknown]
  - Nasal congestion [Unknown]

NARRATIVE: CASE EVENT DATE: 201408
